FAERS Safety Report 12800334 (Version 2)
Quarter: 2016Q4

REPORT INFORMATION
  Report Type: Spontaneous
  Country: GB (occurrence: GB)
  Receive Date: 20160930
  Receipt Date: 20161007
  Transmission Date: 20170207
  Serious: Yes (Disabling, Other)
  Sender: FDA-Public Use
  Company Number: GB-ASTRAZENECA-2016SF02761

PATIENT
  Age: 60 Year
  Sex: Female
  Weight: 86 kg

DRUGS (8)
  1. ADRENALINE ACID TARTRATE [Concomitant]
  2. RANITIDINE. [Concomitant]
     Active Substance: RANITIDINE
     Dates: start: 20160915
  3. ESOMEPRAZOLE [Suspect]
     Active Substance: ESOMEPRAZOLE
     Route: 048
     Dates: start: 20160609
  4. ESOMEPRAZOLE SODIUM. [Suspect]
     Active Substance: ESOMEPRAZOLE SODIUM
     Route: 042
     Dates: start: 20160609
  5. MEBEVERINE HYDROCHLORIDE [Concomitant]
     Active Substance: MEBEVERINE HYDROCHLORIDE
     Dates: start: 20160609
  6. BENDROFLUMETHIAZIDE [Concomitant]
     Active Substance: BENDROFLUMETHIAZIDE
     Dates: start: 20160609
  7. LIGNOSPAN [Concomitant]
     Dosage: USE AS DIRECTED
     Dates: start: 20160803, end: 20160804
  8. EZETIMIBE. [Concomitant]
     Active Substance: EZETIMIBE
     Dates: start: 20160609

REACTIONS (1)
  - Ataxia [Recovering/Resolving]

NARRATIVE: CASE EVENT DATE: 20160915
